FAERS Safety Report 7471879-4 (Version None)
Quarter: 2011Q2

REPORT INFORMATION
  Report Type: 
  Country: None (occurrence: None)
  Receive Date: 20110511
  Receipt Date: 20100628
  Transmission Date: 20111010
  Serious: No
  Sender: FDA-Public Use
  Company Number: A0867399A

PATIENT
  Age: 60 Year
  Sex: Female

DRUGS (3)
  1. HERCEPTIN [Concomitant]
  2. ZOMETA [Concomitant]
  3. TYKERB [Suspect]
     Indication: BREAST CANCER
     Dosage: 6TAB PER DAY
     Route: 048
     Dates: start: 20091101

REACTIONS (1)
  - RASH PAPULAR [None]
